FAERS Safety Report 7490010-2 (Version None)
Quarter: 2011Q2

REPORT INFORMATION
  Report Type: 
  Country: None (occurrence: None)
  Receive Date: 20110517
  Receipt Date: 20110517
  Transmission Date: 20111010
  Serious: Yes (Other)
  Sender: FDA-Public Use
  Company Number: None

PATIENT
  Sex: Female
  Weight: 89.8122 kg

DRUGS (1)
  1. LETROZOLE [Suspect]
     Indication: BREAST CANCER
     Dosage: 1 DAILY BY MOUTH
     Route: 048
     Dates: start: 20110513

REACTIONS (9)
  - NAUSEA [None]
  - ABDOMINAL PAIN UPPER [None]
  - ARTHRALGIA [None]
  - DIARRHOEA [None]
  - VAGINAL HAEMORRHAGE [None]
  - HEADACHE [None]
  - RESPIRATORY DISORDER [None]
  - MUSCLE SPASMS [None]
  - DIZZINESS [None]
